FAERS Safety Report 9166047 (Version 2)
Quarter: 2013Q2

REPORT INFORMATION
  Report Type: Report from Study
  Country: DE (occurrence: DE)
  Receive Date: 20130315
  Receipt Date: 20130401
  Transmission Date: 20140414
  Serious: Yes (Other)
  Sender: FDA-Public Use
  Company Number: DE-ROCHE-1198847

PATIENT
  Age: 35 Year
  Sex: Female
  Weight: 65.5 kg

DRUGS (4)
  1. PERTUZUMAB [Suspect]
     Indication: BREAST CANCER METASTATIC
     Route: 042
     Dates: start: 20121113, end: 20130226
  2. TRASTUZUMAB [Suspect]
     Indication: BREAST CANCER METASTATIC
     Route: 042
     Dates: start: 20121114, end: 20130226
  3. DOCETAXEL [Suspect]
     Indication: BREAST CANCER METASTATIC
     Route: 042
     Dates: start: 20121114, end: 20130226
  4. ZOPICLONE [Concomitant]
     Indication: SLEEP DISORDER
     Route: 048
     Dates: start: 20130213

REACTIONS (1)
  - Disease progression [Not Recovered/Not Resolved]
